FAERS Safety Report 10904080 (Version 1)
Quarter: 2015Q1

REPORT INFORMATION
  Report Type: Spontaneous
  Country: PT (occurrence: None)
  Receive Date: 20150306
  Receipt Date: 20150306
  Transmission Date: 20150721
  Serious: Yes (Hospitalization, Other)
  Sender: FDA-Public Use
  Company Number: 2015SCAL000070

PATIENT
  Age: 35 Year
  Sex: Female

DRUGS (3)
  1. VENLAFAXINE HYDROCHLORIDE (VENLAFAXINE HYDROCHLORIDE) [Suspect]
     Active Substance: VENLAFAXINE HYDROCHLORIDE
     Indication: DEPRESSION
  2. CENTELLA ASIATICA [Suspect]
     Active Substance: CENTELLA ASIATICA
     Indication: WEIGHT LOSS DIET
  3. FUCUS VESICULOSUS [Suspect]
     Active Substance: FUCUS VESICULOSUS
     Indication: WEIGHT LOSS DIET

REACTIONS (8)
  - Hypotension [None]
  - Dyspnoea [None]
  - Myalgia [None]
  - Cough [None]
  - Cardiomegaly [None]
  - Cardiac failure [None]
  - Congestive cardiomyopathy [None]
  - Interstitial lung disease [None]
